FAERS Safety Report 10442021 (Version 1)
Quarter: 2014Q3

REPORT INFORMATION
  Report Type: Spontaneous
  Country: CH (occurrence: CH)
  Receive Date: 20140909
  Receipt Date: 20140909
  Transmission Date: 20150326
  Serious: Yes (Hospitalization)
  Sender: FDA-Public Use
  Company Number: CH-TEVA-506005ISR

PATIENT
  Age: 59 Year
  Sex: Female
  Weight: 67 kg

DRUGS (3)
  1. FLAMON-120 RETARD [Interacting]
     Active Substance: VERAPAMIL HYDROCHLORIDE
     Dosage: 120 MILLIGRAM DAILY; UNTIL WEEK 16
     Route: 048
     Dates: end: 201404
  2. FLAMON-120 RETARD [Suspect]
     Active Substance: VERAPAMIL HYDROCHLORIDE
     Indication: PROPHYLAXIS
     Dosage: 240 MILLIGRAM DAILY; FROM WEEK 17, CONTINUING
     Route: 048
     Dates: start: 201404
  3. ZOMIG [Interacting]
     Active Substance: ZOLMITRIPTAN
     Indication: CLUSTER HEADACHE
     Dosage: 1 DOSAGE FORM AS NECESSARY
     Route: 045
     Dates: end: 20140422

REACTIONS (8)
  - Chest pain [Recovered/Resolved]
  - Nausea [Recovered/Resolved]
  - Ventricular extrasystoles [Recovered/Resolved]
  - Coronary artery occlusion [Recovered/Resolved]
  - Drug interaction [Recovered/Resolved]
  - Acute myocardial infarction [Recovered/Resolved]
  - Dyspnoea [Recovered/Resolved]
  - Presyncope [Recovered/Resolved]

NARRATIVE: CASE EVENT DATE: 20140422
